FAERS Safety Report 7137950-1 (Version None)
Quarter: 2010Q4

REPORT INFORMATION
  Report Type: 
  Country: None (occurrence: None)
  Receive Date: 20101206
  Receipt Date: 20101126
  Transmission Date: 20110411
  Serious: Yes (Death, Hospitalization)
  Sender: FDA-Public Use
  Company Number: JP-SHIRE-SPV1-2010-02090

PATIENT
  Age: 87 Year
  Sex: Male

DRUGS (1)
  1. LANTHANUM CARBONATE [Suspect]
     Indication: HYPERPHOSPHATAEMIA
     Dosage: 250 UNK, UNK
     Route: 048
     Dates: start: 20100709

REACTIONS (2)
  - CARDIAC FAILURE [None]
  - PLEURAL EFFUSION [None]
